FAERS Safety Report 19424046 (Version 1)
Quarter: 2021Q2

REPORT INFORMATION
  Report Type: Report from Study
  Country: US (occurrence: US)
  Receive Date: 20210616
  Receipt Date: 20210616
  Transmission Date: 20210717
  Serious: Yes (Hospitalization, Other)
  Sender: FDA-Public Use
  Company Number: US-PFIZER INC-2021664054

PATIENT
  Age: 13 Year
  Sex: Male
  Weight: 25 kg

DRUGS (56)
  1. TACROLIMUS. [Suspect]
     Active Substance: TACROLIMUS
     Dosage: 1 MG SINGLE
     Route: 050
     Dates: start: 20210315, end: 20210315
  2. IBUPROFEN. [Concomitant]
     Active Substance: IBUPROFEN
     Dosage: UNK
     Dates: start: 201208
  3. OMEPRAZOLE. [Concomitant]
     Active Substance: OMEPRAZOLE
     Dosage: UNK
     Dates: start: 2018
  4. RIBOFLAVIN [Concomitant]
     Active Substance: RIBOFLAVIN
     Dosage: UNK
     Dates: start: 2014
  5. ONDANSETRON HYDROCHLORIDE. [Concomitant]
     Active Substance: ONDANSETRON HYDROCHLORIDE
     Dosage: UNK
     Dates: start: 2012
  6. EMLA [Concomitant]
     Active Substance: LIDOCAINE\PRILOCAINE
     Dosage: UNK
     Dates: start: 201902
  7. HEPARIN [Concomitant]
     Active Substance: HEPARIN SODIUM
     Dosage: UNK
     Dates: start: 2011
  8. BACTRIM [Concomitant]
     Active Substance: SULFAMETHOXAZOLE\TRIMETHOPRIM
  9. TACROLIMUS. [Suspect]
     Active Substance: TACROLIMUS
     Dosage: 1 MG, BID
     Dates: start: 20210316, end: 20210324
  10. TACROLIMUS. [Suspect]
     Active Substance: TACROLIMUS
     Dosage: 0.8 MG, SINGLE
     Route: 050
     Dates: start: 20210325, end: 20210325
  11. UBIDECARENONE. [Concomitant]
     Active Substance: UBIDECARENONE
     Dosage: UNK
     Dates: start: 2014
  12. POTASSIUM CHLORIDE. [Concomitant]
     Active Substance: POTASSIUM CHLORIDE
     Dosage: UNK
     Dates: start: 2012
  13. COLECALCIFEROL [Concomitant]
     Active Substance: CHOLECALCIFEROL
     Dosage: UNK
     Dates: start: 2012
  14. MENAQUINONE?7 [COLECALCIFEROL;MENAQUINONE?7] [Concomitant]
     Dosage: UNK
     Dates: start: 2012
  15. SIROLIMUS. [Suspect]
     Active Substance: SIROLIMUS
     Dosage: 0.12 MG, SINGLE
     Route: 050
     Dates: start: 20210420, end: 20210420
  16. SIROLIMUS. [Suspect]
     Active Substance: SIROLIMUS
     Dosage: 0.1 MG, BID
     Route: 050
     Dates: start: 20210428
  17. TACROLIMUS. [Suspect]
     Active Substance: TACROLIMUS
     Indication: IMMUNOSUPPRESSION
     Dosage: 1.25 MG, BID
     Route: 050
     Dates: start: 20210312, end: 20210314
  18. TACROLIMUS. [Suspect]
     Active Substance: TACROLIMUS
     Dosage: 0.55 MG, SINGLE
     Dates: start: 20210420, end: 20210420
  19. PREDNISOLONE. [Suspect]
     Active Substance: PREDNISOLONE
     Indication: IMMUNOSUPPRESSION
     Dosage: 12.3 MG, QD
     Route: 050
     Dates: start: 20210312, end: 20210325
  20. DEXAMETHASONE. [Suspect]
     Active Substance: DEXAMETHASONE
     Indication: ORAL CANDIDIASIS
     Dosage: 1 SWAB APPLICATION, QID
     Route: 048
     Dates: start: 20210420
  21. DEXAMETHASONE. [Suspect]
     Active Substance: DEXAMETHASONE
     Dosage: 18 MG, SINGLE
     Route: 042
     Dates: start: 20210512, end: 20210512
  22. GABAPENTIN. [Concomitant]
     Active Substance: GABAPENTIN
     Dosage: UNK
     Dates: start: 2014
  23. IMMUNOGLOBULIN HUMAN NORMAL [Concomitant]
     Active Substance: HUMAN IMMUNOGLOBULIN G
     Dosage: UNK
     Dates: start: 201208
  24. LACTOBACILLUS ACIDOPHILUS [Concomitant]
     Active Substance: LACTOBACILLUS ACIDOPHILUS
     Dosage: UNK
     Dates: start: 20191119
  25. SIROLIMUS. [Suspect]
     Active Substance: SIROLIMUS
     Dosage: 0.12 MG, BID
     Route: 050
     Dates: start: 20210421, end: 20210426
  26. SIROLIMUS. [Suspect]
     Active Substance: SIROLIMUS
     Dosage: 0.1 MG, SINGLE
     Route: 050
     Dates: start: 20210427, end: 20210427
  27. TACROLIMUS. [Suspect]
     Active Substance: TACROLIMUS
     Dosage: 0.6 MG, BID
     Route: 050
     Dates: start: 20210405, end: 20210407
  28. PREDNISOLONE. [Suspect]
     Active Substance: PREDNISOLONE
     Dosage: 13.5 MG, QD
     Route: 050
     Dates: start: 20210518, end: 20210521
  29. FAMOTIDINE. [Concomitant]
     Active Substance: FAMOTIDINE
     Dosage: UNK
     Dates: start: 202009
  30. SIROLIMUS. [Suspect]
     Active Substance: SIROLIMUS
     Dosage: 0.15 MG, BID
     Route: 050
     Dates: start: 20210320, end: 20210419
  31. SIROLIMUS. [Suspect]
     Active Substance: SIROLIMUS
     Dosage: 0.15 MG, SINGLE
     Route: 050
     Dates: start: 20210420, end: 20210420
  32. TACROLIMUS. [Suspect]
     Active Substance: TACROLIMUS
     Dosage: 0.6 MG, SINGLE
     Route: 050
     Dates: start: 20210408, end: 20210408
  33. TACROLIMUS. [Suspect]
     Active Substance: TACROLIMUS
     Dosage: 0.7 MG, SINGLE
     Route: 050
     Dates: start: 20210408, end: 20210408
  34. TACROLIMUS. [Suspect]
     Active Substance: TACROLIMUS
     Dosage: 0.7 MG, SINGLE
     Route: 050
     Dates: start: 20210420, end: 20210420
  35. PREDNISOLONE. [Suspect]
     Active Substance: PREDNISOLONE
     Dosage: 8.7 MG, QD
     Route: 050
     Dates: start: 20210326, end: 20210408
  36. PREDNISOLONE. [Suspect]
     Active Substance: PREDNISOLONE
     Dosage: 4.8 MG, QD
     Route: 050
     Dates: start: 20210409, end: 20210517
  37. DEXAMETHASONE. [Suspect]
     Active Substance: DEXAMETHASONE
     Indication: ANAESTHESIA
     Dosage: 8 MG, SINGLE
     Route: 042
     Dates: start: 20210428, end: 20210428
  38. CETIRIZINE [Concomitant]
     Active Substance: CETIRIZINE HYDROCHLORIDE
     Dosage: UNK
     Dates: start: 2017
  39. IDURSULFASE [Concomitant]
     Active Substance: IDURSULFASE
     Dosage: UNK
     Dates: start: 2011
  40. SULFAMETHOXAZOLE/TRIMETHOPRIM [Suspect]
     Active Substance: SULFAMETHOXAZOLE\TRIMETHOPRIM
     Dosage: 124 MG, 3XWEEKLY
     Dates: start: 20210326
  41. TACROLIMUS. [Suspect]
     Active Substance: TACROLIMUS
     Dosage: 1.25 MG, SINGLE
     Route: 050
     Dates: start: 20210315, end: 20210315
  42. TACROLIMUS. [Suspect]
     Active Substance: TACROLIMUS
     Dosage: 1 MG SINGLE
     Route: 050
     Dates: start: 20210325, end: 20210325
  43. DEXAMETHASONE. [Suspect]
     Active Substance: DEXAMETHASONE
     Dosage: 2 MG, QD
     Route: 050
     Dates: start: 20210522
  44. ALBUTEROL HFA [Concomitant]
     Active Substance: ALBUTEROL SULFATE
     Dosage: UNK
     Dates: start: 2017
  45. BUDESONIDE. [Concomitant]
     Active Substance: BUDESONIDE
     Dosage: UNK
     Dates: start: 2017
  46. SIROLIMUS. [Suspect]
     Active Substance: SIROLIMUS
     Dosage: 0.2 MG, BID
     Route: 050
     Dates: start: 20210310, end: 20210312
  47. SIROLIMUS. [Suspect]
     Active Substance: SIROLIMUS
     Dosage: 0.1 MG, BID
     Route: 050
     Dates: start: 20210313, end: 20210319
  48. MONTELUKAST SODIUM. [Concomitant]
     Active Substance: MONTELUKAST SODIUM
     Dosage: UNK
     Dates: start: 2017
  49. ACETAMINOPHEN. [Concomitant]
     Active Substance: ACETAMINOPHEN
     Dosage: UNK
     Dates: start: 2011
  50. SIROLIMUS. [Suspect]
     Active Substance: SIROLIMUS
     Indication: IMMUNOSUPPRESSION
     Dosage: 0.92 MG, TID
     Route: 050
     Dates: start: 20210309, end: 20210309
  51. SIROLIMUS. [Suspect]
     Active Substance: SIROLIMUS
     Dosage: 0.12 MG, SINGLE
     Route: 050
     Dates: start: 20210427, end: 20210427
  52. SULFAMETHOXAZOLE/TRIMETHOPRIM [Suspect]
     Active Substance: SULFAMETHOXAZOLE\TRIMETHOPRIM
     Indication: ANTIFUNGAL PROPHYLAXIS
     Dosage: 123.2 MG, 3X/WEEKLY
     Route: 050
     Dates: start: 20210309, end: 20210325
  53. TACROLIMUS. [Suspect]
     Active Substance: TACROLIMUS
     Dosage: 0.8 MG, BID
     Route: 050
     Dates: start: 20210326, end: 20210404
  54. TACROLIMUS. [Suspect]
     Active Substance: TACROLIMUS
     Dosage: 0.7 MG, BID
     Route: 050
     Dates: start: 20210409, end: 20210419
  55. TACROLIMUS. [Suspect]
     Active Substance: TACROLIMUS
     Dosage: 0.55 MG, BID
     Route: 050
     Dates: start: 20210421
  56. DIPHENHYDRAMINE. [Concomitant]
     Active Substance: DIPHENHYDRAMINE
     Dosage: UNK
     Dates: start: 20090214

REACTIONS (9)
  - Periorbital oedema [Recovered/Resolved]
  - Myoclonus [Recovered/Resolved]
  - Oral candidiasis [Recovered/Resolved]
  - Dysphagia [Not Recovered/Not Resolved]
  - VIIth nerve injury [Recovered/Resolved]
  - Stomatitis [Recovered/Resolved]
  - VIIth nerve injury [Recovered/Resolved]
  - Somnolence [Recovered/Resolved]
  - Abdominal pain [Recovered/Resolved]

NARRATIVE: CASE EVENT DATE: 20210406
